FAERS Safety Report 15153410 (Version 1)
Quarter: 2018Q3

REPORT INFORMATION
  Report Type: Spontaneous
  Country: US (occurrence: US)
  Receive Date: 20180619
  Receipt Date: 20180619
  Transmission Date: 20181010
  Serious: No
  Sender: FDA-Public Use
  Company Number: None

PATIENT
  Age: 28 Year
  Sex: Female

DRUGS (1)
  1. GLATOPA [Suspect]
     Active Substance: GLATIRAMER ACETATE
     Indication: MULTIPLE SCLEROSIS
     Route: 058
     Dates: start: 20171221

REACTIONS (5)
  - Seizure like phenomena [None]
  - Refusal of treatment by patient [None]
  - Balance disorder [None]
  - Vision blurred [None]
  - Panic attack [None]

NARRATIVE: CASE EVENT DATE: 20180613
